APPROVED DRUG PRODUCT: VARITHENA
Active Ingredient: POLIDOCANOL
Strength: 77.5MG/7.75ML (10MG/ML)
Dosage Form/Route: SOLUTION;INTRAVENOUS
Application: N205098 | Product #002
Applicant: PROVENSIS LTD
Approved: Dec 21, 2017 | RLD: Yes | RS: No | Type: DISCN